FAERS Safety Report 6183740-6 (Version None)
Quarter: 2009Q2

REPORT INFORMATION
  Report Type: 
  Country: None (occurrence: None)
  Receive Date: 20090508
  Receipt Date: 20090508
  Transmission Date: 20091009
  Serious: Yes (Other)
  Sender: FDA-Public Use
  Company Number: US-PFIZER INC-2009172899

PATIENT
  Sex: Male

DRUGS (3)
  1. LYRICA [Suspect]
     Indication: NEURALGIA
     Dosage: 150 MG, 2X/DAY
  2. WELLBUTRIN [Concomitant]
     Dosage: UNK
  3. LAMICTAL [Concomitant]
     Dosage: UNK

REACTIONS (1)
  - BIPOLAR I DISORDER [None]
